FAERS Safety Report 21506976 (Version 4)
Quarter: 2023Q2

REPORT INFORMATION
  Report Type: Spontaneous
  Country: GB (occurrence: GB)
  Receive Date: 20221026
  Receipt Date: 20230418
  Transmission Date: 20230722
  Serious: Yes (Death, Hospitalization, Other)
  Sender: FDA-Public Use
  Company Number: GB-CELGENE-GBR-2016031205

PATIENT

DRUGS (67)
  1. LENALIDOMIDE [Suspect]
     Active Substance: LENALIDOMIDE
     Indication: Prophylaxis
     Dosage: 40 MILLIGRAM, QD (200 MG, QD), TABLET
     Route: 048
     Dates: start: 20160223, end: 20160228
  2. LENALIDOMIDE [Suspect]
     Active Substance: LENALIDOMIDE
     Dosage: 1400 MILLIGRAM
     Route: 065
  3. ALLOPURINOL [Suspect]
     Active Substance: ALLOPURINOL
     Indication: Plasma cell myeloma
     Dosage: 3 MILLIGRAM, QD
     Route: 048
     Dates: start: 20160223, end: 20160228
  4. ALLOPURINOL [Suspect]
     Active Substance: ALLOPURINOL
     Indication: Prophylaxis
     Dosage: 3 MILLIGRAM, QD
     Route: 048
     Dates: start: 20160223, end: 20160321
  5. ALLOPURINOL [Suspect]
     Active Substance: ALLOPURINOL
     Dosage: 200 MILLIGRAM, QD
     Route: 048
     Dates: start: 20160223
  6. ALLOPURINOL [Suspect]
     Active Substance: ALLOPURINOL
     Dosage: 40 MILLIGRAM, WEEKLY
     Route: 048
     Dates: start: 20160223
  7. ALLOPURINOL [Suspect]
     Active Substance: ALLOPURINOL
     Dosage: 40 MILLIGRAM, QD
     Route: 048
     Dates: start: 20160223, end: 20160228
  8. ALLOPURINOL [Suspect]
     Active Substance: ALLOPURINOL
     Dosage: 3 MILLIGRAM
     Route: 048
     Dates: start: 20160223, end: 20160228
  9. ALLOPURINOL [Suspect]
     Active Substance: ALLOPURINOL
     Dosage: 40 MILLIGRAM EVERY WEEK
     Route: 048
     Dates: start: 20160315
  10. ALLOPURINOL [Suspect]
     Active Substance: ALLOPURINOL
     Dosage: 40 MILLIGRAM, WEEKLY, (QD 40 MG), QW
     Route: 048
     Dates: start: 20160315
  11. ALLOPURINOL [Suspect]
     Active Substance: ALLOPURINOL
     Dosage: 200 MILLIGRAM, QD
     Route: 048
     Dates: start: 20160223
  12. ALLOPURINOL [Suspect]
     Active Substance: ALLOPURINOL
     Dosage: 3 MILLIGRAM, QD
     Route: 048
     Dates: start: 20160223, end: 20160321
  13. ALLOPURINOL [Suspect]
     Active Substance: ALLOPURINOL
     Dosage: 200 MILLIGRAM, QD
     Route: 048
  14. ALLOPURINOL [Suspect]
     Active Substance: ALLOPURINOL
     Dosage: 3 MILLIGRAM, QD
     Route: 048
     Dates: start: 20160223
  15. ALLOPURINOL [Suspect]
     Active Substance: ALLOPURINOL
     Dosage: 3 MILLIGRAM
     Route: 048
     Dates: start: 20160223, end: 20160228
  16. ALLOPURINOL [Suspect]
     Active Substance: ALLOPURINOL
     Dosage: 40 MILLIGRAM, WEEKLY
     Route: 048
     Dates: start: 20160315
  17. ALLOPURINOL [Suspect]
     Active Substance: ALLOPURINOL
     Dosage: 3 MILLIGRAM, QD
     Route: 048
     Dates: start: 20160223, end: 20160321
  18. ALLOPURINOL [Suspect]
     Active Substance: ALLOPURINOL
     Dosage: 40 MILLIGRAM, QD
     Route: 048
     Dates: start: 20160223, end: 20160228
  19. ALLOPURINOL [Suspect]
     Active Substance: ALLOPURINOL
     Dosage: 200 MILLIGRAM, QD
     Route: 048
     Dates: start: 20160223
  20. ALLOPURINOL [Suspect]
     Active Substance: ALLOPURINOL
     Dosage: 40 MILLIGRAM, QD
     Route: 048
     Dates: start: 20160315
  21. DEXAMETHASONE [Suspect]
     Active Substance: DEXAMETHASONE
     Indication: Plasma cell myeloma
     Dosage: 5.71 MILLIGRAM, EVERY WEEK, 40 MG/WK RECEIVED TILL 2-MAR-2016 AND ALSO RECEIVED 15-MAR-2016 (8 DAYS)
     Route: 048
     Dates: start: 20160223, end: 20160302
  22. DEXAMETHASONE [Suspect]
     Active Substance: DEXAMETHASONE
     Dosage: 40 MILLIGRAM, EVERY WEEK (TABLET) @
     Route: 048
     Dates: start: 20160223, end: 20160315
  23. DEXAMETHASONE [Suspect]
     Active Substance: DEXAMETHASONE
     Dosage: 5.71 MILLIGRAM, WEEKLY
     Route: 048
     Dates: start: 20160223
  24. DEXAMETHASONE [Suspect]
     Active Substance: DEXAMETHASONE
     Dosage: 40 MILLIGRAM, WEEKLY, RECEIVED TILL 2-MAR-2016 AND ALSO RECEIVED 15-MAR2016 (8 DAYS), 5.7143 MILLIGR
     Route: 048
     Dates: start: 20160315, end: 20160322
  25. DEXAMETHASONE [Suspect]
     Active Substance: DEXAMETHASONE
     Dosage: 40 MILLIGRAM, 8 DAYS ( (5.7143 MILLIGRAM), SOLUBLE TABLET
     Route: 048
     Dates: start: 20160223, end: 20160302
  26. DEXAMETHASONE [Suspect]
     Active Substance: DEXAMETHASONE
     Dosage: 40 MILLIGRAM
     Route: 065
  27. DEXAMETHASONE [Suspect]
     Active Substance: DEXAMETHASONE
     Dosage: 40 MILLIGRAM, SOLUBLE TABLET
     Route: 065
  28. DEXAMETHASONE [Suspect]
     Active Substance: DEXAMETHASONE
     Dosage: 40 MILLIGRAM, SOLUBLE TABLET
     Route: 065
  29. DEXAMETHASONE [Suspect]
     Active Substance: DEXAMETHASONE
     Dosage: 5.71 MILLIGRAM (5.7143 MILLIGRAM)
     Route: 048
     Dates: start: 20160223
  30. DEXAMETHASONE [Suspect]
     Active Substance: DEXAMETHASONE
     Dosage: 40 MILLIGRAM, QW
     Route: 048
     Dates: start: 20160223, end: 20160302
  31. DEXAMETHASONE [Suspect]
     Active Substance: DEXAMETHASONE
     Dosage: 5.71 MILLIGRAM, EVERY WEEK
     Route: 048
     Dates: start: 20160223, end: 20160302
  32. DEXAMETHASONE [Suspect]
     Active Substance: DEXAMETHASONE
     Dosage: 40 MILLIGRAM, QW
     Route: 048
     Dates: start: 20160223
  33. DEXAMETHASONE [Suspect]
     Active Substance: DEXAMETHASONE
     Dosage: 5.71 MILLIGRAM
     Route: 065
     Dates: start: 20160315
  34. DEXAMETHASONE [Suspect]
     Active Substance: DEXAMETHASONE
     Dosage: 40 MILLIGRAM, QD
     Route: 065
     Dates: start: 20160315
  35. DEXAMETHASONE [Suspect]
     Active Substance: DEXAMETHASONE
     Dosage: 40 MILLIGRAM
     Route: 048
     Dates: start: 20160315
  36. DEXAMETHASONE [Suspect]
     Active Substance: DEXAMETHASONE
     Dosage: 5.71 MILLIGRAM, EVERY WEEK
     Route: 048
     Dates: start: 20160223
  37. DEXAMETHASONE [Suspect]
     Active Substance: DEXAMETHASONE
     Dosage: 5.71 MILLIGRAM, 8 DAYS
     Route: 048
     Dates: start: 20160223, end: 20160302
  38. DEXAMETHASONE [Suspect]
     Active Substance: DEXAMETHASONE
     Dosage: 40 MILLIGRAM, EVERY WEEK
     Route: 048
     Dates: start: 20160223, end: 20160315
  39. DEXAMETHASONE [Suspect]
     Active Substance: DEXAMETHASONE
     Dosage: 40 MILLIGRAM, SOLUBLE TABLET
     Route: 065
  40. DEXAMETHASONE [Suspect]
     Active Substance: DEXAMETHASONE
     Dosage: UNK, SOLUBLE TABLET
     Route: 065
     Dates: start: 20160315
  41. POMALIDOMIDE [Suspect]
     Active Substance: POMALIDOMIDE
     Indication: Plasma cell myeloma
     Dosage: 63 MILLIGRAM, 28 DAYS, CAPSULE
     Route: 048
     Dates: start: 20160223, end: 20160315
  42. POMALIDOMIDE [Suspect]
     Active Substance: POMALIDOMIDE
     Dosage: 3 MILLIGRAM, 28 DAYS (84 MILLIGRAM, 28 DAYS (3 MILLIGRAM), CAPSULE
     Route: 048
     Dates: start: 20160223, end: 20160315
  43. POMALIDOMIDE [Suspect]
     Active Substance: POMALIDOMIDE
     Dosage: 84 MILLIGRAM 28 DAYS (3 MILLIGRAM, ALSO RECEIVED ON 28-FEB-2016; ALSO RECEIVED 4 MG), CAPSULE
     Route: 048
     Dates: start: 20160223, end: 20160321
  44. POMALIDOMIDE [Suspect]
     Active Substance: POMALIDOMIDE
     Dosage: 84 MILLIGRAM 28 DAYS (3 MILLIGRAM, ALSO RECEIVED ON 28-FEB-2016; ALSO RECEIVED 4 MG), CAPSULE
     Route: 048
     Dates: start: 20160223, end: 20160321
  45. POMALIDOMIDE [Suspect]
     Active Substance: POMALIDOMIDE
     Dosage: 4 MILLIGRAM, 28 DAYS (84 MILLIGRAM, 28 DAYS (3 MILLIGRAM), CAPSULE
     Route: 048
     Dates: start: 20160223, end: 20160228
  46. POMALIDOMIDE [Suspect]
     Active Substance: POMALIDOMIDE
     Dosage: 40 MILLIGRAM, RECEIVED TILL 2-MAR-2016 AND ALSO RECEIVED 15-MAR-2016 (8 DAYS), 5.7143 MILLIGRAM, CAP
     Route: 048
     Dates: start: 20160315
  47. POMALIDOMIDE [Suspect]
     Active Substance: POMALIDOMIDE
     Dosage: 84 MILLIGRAM, 27 DAYS (84 MILLIGRAM, 984 MILLIGRAM 28 DAYS (3 MILLIGRAM)), CAPSULE
     Route: 048
     Dates: start: 20160223, end: 20160321
  48. POMALIDOMIDE [Suspect]
     Active Substance: POMALIDOMIDE
     Dosage: 40 MILLIGRAM, RECEIVED TILL 2-MAR-2016 AND ALSO RECEIVED 15-MAR-2016 (8 DAYS), 5.7143 MILLIGRAM, CAP
     Route: 048
     Dates: start: 20160315
  49. POMALIDOMIDE [Suspect]
     Active Substance: POMALIDOMIDE
     Dosage: 4 MILLIGRAM, 28 DAYS (84 MILLIGRAM, 28 DAYS (3 MILLIGRAM), CAPSULE, CAPSULE
     Route: 048
     Dates: start: 20160223, end: 20160228
  50. POMALIDOMIDE [Suspect]
     Active Substance: POMALIDOMIDE
     Dosage: 84 MILLIGRAM 28 DAYS (3 MILLIGRAM, ALSO RECEIVED ON 28-FEB-2016; ALSO RECEIVED 4 MG), CAPSULE
     Route: 048
     Dates: start: 20160223, end: 20160228
  51. POMALIDOMIDE [Suspect]
     Active Substance: POMALIDOMIDE
     Dosage: 84 MILLIGRAM 28 DAYS (3 MILLIGRAM, ALSO RECEIVED ON 28-FEB-2016; ALSO RECEIVED 4 MG), CAPSULE
     Route: 048
     Dates: start: 20160223, end: 20160228
  52. POMALIDOMIDE [Suspect]
     Active Substance: POMALIDOMIDE
     Dosage: 63 MILLIGRAM, 28 DAYS, CAPSULE
     Route: 048
     Dates: start: 20160223, end: 20160315
  53. POMALIDOMIDE [Suspect]
     Active Substance: POMALIDOMIDE
     Dosage: 84 MILLIGRAM 28 DAYS
     Route: 048
     Dates: start: 20160228
  54. POMALIDOMIDE [Suspect]
     Active Substance: POMALIDOMIDE
     Dosage: 84 MILLIGRAM 28 DAYS
     Route: 048
     Dates: start: 20160223, end: 20160315
  55. POMALIDOMIDE [Suspect]
     Active Substance: POMALIDOMIDE
     Dosage: 84 MILLIGRAM 34 DAYS
     Route: 048
     Dates: start: 20160223, end: 20160328
  56. POMALIDOMIDE [Suspect]
     Active Substance: POMALIDOMIDE
     Dosage: 84 MILLIGRAM 34 DAYS
     Route: 048
     Dates: start: 20160223, end: 20160328
  57. POMALIDOMIDE [Suspect]
     Active Substance: POMALIDOMIDE
     Dosage: 84 MILLIGRAM 21 DAYS
     Route: 048
     Dates: start: 20160223, end: 20160315
  58. POMALIDOMIDE [Suspect]
     Active Substance: POMALIDOMIDE
     Dosage: 4 MILLIGRAM, 27 DAYS
     Route: 048
     Dates: start: 20160223, end: 20160321
  59. POMALIDOMIDE [Suspect]
     Active Substance: POMALIDOMIDE
     Dosage: 4 MILLIGRAM, 27 DAYS
     Route: 048
     Dates: start: 20160223, end: 20160228
  60. POMALIDOMIDE [Suspect]
     Active Substance: POMALIDOMIDE
     Dosage: 4 MILLIGRAM, 28 DAYS (84 MILLIGRAM, 28 DAYS (3 MILLIGRAM), CAPSULE
     Route: 048
     Dates: start: 20160223, end: 20160321
  61. POMALIDOMIDE [Suspect]
     Active Substance: POMALIDOMIDE
     Dosage: 4 MILLIGRAM, 28 DAYS (84 MILLIGRAM, 28 DAYS (3 MILLIGRAM), CAPSULE
     Route: 048
     Dates: start: 20160223, end: 20160228
  62. POMALIDOMIDE [Suspect]
     Active Substance: POMALIDOMIDE
     Dosage: 3 MILLIGRAM, 28 DAYS (84 MILLIGRAM, 28 DAYS (3 MILLIGRAM), CAPSULE
     Route: 048
     Dates: start: 20160223, end: 20160321
  63. POMALIDOMIDE [Suspect]
     Active Substance: POMALIDOMIDE
     Dosage: 3 MILLIGRAM, 28 DAYS (84 MILLIGRAM, 28 DAYS (3 MILLIGRAM), CAPSULE
     Route: 048
     Dates: start: 20160223, end: 20160321
  64. POMALIDOMIDE [Suspect]
     Active Substance: POMALIDOMIDE
     Dosage: 63 MILLIGRAM, 28 DAYS, CAPSULE
     Route: 048
     Dates: start: 20160223, end: 20160315
  65. POMALIDOMIDE [Suspect]
     Active Substance: POMALIDOMIDE
     Dosage: 63 MILLIGRAM, 21 DAYS, CAPSULE
     Route: 048
     Dates: start: 20160223, end: 20160315
  66. DALTEPARIN [Concomitant]
     Active Substance: DALTEPARIN
     Indication: Anticoagulant therapy
     Dosage: 5000 INTERNATIONAL UNIT
     Route: 065
     Dates: start: 20160223, end: 20160302
  67. OMEPRAZOLE [Concomitant]
     Active Substance: OMEPRAZOLE
     Indication: Product used for unknown indication
     Dosage: 20 MILLIGRAM DAILY; 20 MILLIGRAM
     Route: 048
     Dates: start: 20160223

REACTIONS (10)
  - Plasma cell myeloma [Fatal]
  - Bone marrow failure [Fatal]
  - Thrombocytopenia [Fatal]
  - Off label use [Fatal]
  - Condition aggravated [Fatal]
  - Neutropenia [Fatal]
  - Intentional product misuse [Fatal]
  - Rash [Fatal]
  - Acute kidney injury [Fatal]
  - Pneumonia [Fatal]

NARRATIVE: CASE EVENT DATE: 20160301
